FAERS Safety Report 10933092 (Version 1)
Quarter: 2015Q1

REPORT INFORMATION
  Report Type: Report from Study
  Country: US (occurrence: US)
  Receive Date: 20150320
  Receipt Date: 20150320
  Transmission Date: 20150721
  Serious: No
  Sender: FDA-Public Use
  Company Number: US-ABBVIE-15P-163-1347649-00

PATIENT
  Sex: Male

DRUGS (1)
  1. VIEKIRA PAK [Suspect]
     Active Substance: DASABUVIR\OMBITASVIR\PARITAPREVIR\RITONAVIR
     Indication: HEPATITIS C
     Dosage: 2 PINK TABS DAILY; 1 BEIGE TAB BID
     Route: 065
     Dates: start: 201501

REACTIONS (4)
  - Nasopharyngitis [Unknown]
  - Throat irritation [Unknown]
  - Paranasal sinus discomfort [Unknown]
  - Sneezing [Unknown]
